FAERS Safety Report 10399860 (Version 3)
Quarter: 2014Q3

REPORT INFORMATION
  Report Type: Spontaneous
  Country: US (occurrence: US)
  Receive Date: 20140821
  Receipt Date: 20140903
  Transmission Date: 20150326
  Serious: Yes (Other)
  Sender: FDA-Public Use
  Company Number: US-TEVA-503899USA

PATIENT
  Age: 36 Year
  Sex: Female

DRUGS (2)
  1. PARAGARD T380A [Suspect]
     Active Substance: COPPER
     Indication: CONTRACEPTION
     Route: 015
     Dates: start: 20140809, end: 20140809
  2. PARAGARD T380A [Suspect]
     Active Substance: COPPER
     Route: 015

REACTIONS (3)
  - Medical device complication [Recovered/Resolved]
  - Adverse event [Unknown]
  - Retained placenta or membranes [Unknown]

NARRATIVE: CASE EVENT DATE: 20140809
